FAERS Safety Report 19156878 (Version 1)
Quarter: 2021Q2

REPORT INFORMATION
  Report Type: Spontaneous
  Country: US (occurrence: US)
  Receive Date: 20210419
  Receipt Date: 20210419
  Transmission Date: 20210717
  Serious: No
  Sender: FDA-Public Use
  Company Number: None

PATIENT
  Age: 43 Year
  Sex: Male
  Weight: 81.65 kg

DRUGS (1)
  1. METHYLPHENIDATE 5MG [Suspect]
     Active Substance: METHYLPHENIDATE HYDROCHLORIDE
     Indication: ATTENTION DEFICIT HYPERACTIVITY DISORDER
     Dosage: ?          QUANTITY:30 DF DOSAGE FORM;?
     Route: 048

REACTIONS (3)
  - Product odour abnormal [None]
  - Product quality issue [None]
  - Product physical issue [None]

NARRATIVE: CASE EVENT DATE: 20210402
